FAERS Safety Report 7992675-5 (Version None)
Quarter: 2011Q4

REPORT INFORMATION
  Report Type: 
  Country: None (occurrence: None)
  Receive Date: 20111219
  Receipt Date: 20110509
  Transmission Date: 20120403
  Serious: No
  Sender: FDA-Public Use
  Company Number: US-ASTRAZENECA-2011SE27218

PATIENT
  Sex: Female

DRUGS (2)
  1. CRESTOR [Suspect]
     Indication: HYPERCHLORAEMIA
     Route: 048
     Dates: start: 20110401
  2. COQ-10 [Concomitant]

REACTIONS (3)
  - HYPOTHYROIDISM [None]
  - MUSCLE SPASMS [None]
  - MYALGIA [None]
